FAERS Safety Report 6174960-5 (Version None)
Quarter: 2009Q2

REPORT INFORMATION
  Report Type: 
  Country: None (occurrence: None)
  Receive Date: 20090430
  Receipt Date: 20081027
  Transmission Date: 20091009
  Serious: No
  Sender: FDA-Public Use
  Company Number: US-ASTRAZENECA-2008UW24040

PATIENT
  Age: 43 Year
  Sex: Female

DRUGS (3)
  1. NEXIUM [Suspect]
     Indication: WEIGHT DECREASED
     Route: 048
     Dates: start: 20081026
  2. NEXIUM [Suspect]
     Indication: TONGUE DISORDER
     Route: 048
     Dates: start: 20081026
  3. NEXIUM [Suspect]
     Indication: DYSGEUSIA
     Route: 048
     Dates: start: 20081026

REACTIONS (4)
  - ANOREXIA [None]
  - DRUG ADMINISTRATION ERROR [None]
  - ILL-DEFINED DISORDER [None]
  - NERVOUSNESS [None]
